FAERS Safety Report 7769024-0 (Version None)
Quarter: 2011Q3

REPORT INFORMATION
  Report Type: 
  Country: None (occurrence: None)
  Receive Date: 20110922
  Receipt Date: 20110309
  Transmission Date: 20111222
  Serious: No
  Sender: FDA-Public Use
  Company Number: US-ASTRAZENECA-2011SE13175

PATIENT
  Sex: Female

DRUGS (6)
  1. KLONOPIN [Concomitant]
  2. SEROQUEL XR [Suspect]
     Route: 048
     Dates: start: 20101201
  3. MORPHINE SULFATE [Concomitant]
  4. LORTAB [Concomitant]
  5. EFFEXOR XR [Concomitant]
  6. SEROQUEL XR [Suspect]
     Indication: SLEEP DISORDER
     Route: 048
     Dates: start: 20100701

REACTIONS (6)
  - SOMNOLENCE [None]
  - FEELING ABNORMAL [None]
  - SOCIAL AVOIDANT BEHAVIOUR [None]
  - DRUG DOSE OMISSION [None]
  - HYPERSOMNIA [None]
  - POOR QUALITY SLEEP [None]
